FAERS Safety Report 5741884-4 (Version None)
Quarter: 2008Q2

REPORT INFORMATION
  Report Type: 
  Country: None (occurrence: None)
  Receive Date: 20080519
  Receipt Date: 20080507
  Transmission Date: 20081010
  Serious: Yes (Other)
  Sender: FDA-Public Use
  Company Number: NL-JNJFOC-20080405729

PATIENT
  Age: 56 Year
  Sex: Female

DRUGS (3)
  1. TAVANIC [Suspect]
     Indication: CAT SCRATCH DISEASE
     Route: 048
  2. TAVANIC [Suspect]
     Indication: LYME DISEASE
     Route: 048
  3. UNSPECIFIED MEDICATION [Concomitant]

REACTIONS (1)
  - NEURALGIA [None]
